FAERS Safety Report 20417432 (Version 2)
Quarter: 2022Q1

REPORT INFORMATION
  Report Type: Spontaneous
  Country: US (occurrence: US)
  Receive Date: 20220202
  Receipt Date: 20220321
  Transmission Date: 20220424
  Serious: No
  Sender: FDA-Public Use
  Company Number: US-ALXN-A202201206

PATIENT
  Age: 34 Year
  Sex: Male

DRUGS (1)
  1. SOLIRIS [Suspect]
     Active Substance: ECULIZUMAB
     Indication: Product used for unknown indication
     Dosage: UNK
     Route: 065

REACTIONS (3)
  - Flatulence [Not Recovered/Not Resolved]
  - Abdominal distension [Not Recovered/Not Resolved]
  - Constipation [Not Recovered/Not Resolved]
